FAERS Safety Report 10874161 (Version 2)
Quarter: 2015Q1

REPORT INFORMATION
  Report Type: Spontaneous
  Country: TR (occurrence: TR)
  Receive Date: 20150227
  Receipt Date: 20150227
  Transmission Date: 20150721
  Serious: Yes (Death, Hospitalization)
  Sender: FDA-Public Use
  Company Number: PHHY2015TR022619

PATIENT
  Age: 36 Year
  Sex: Male

DRUGS (9)
  1. PREDNISOLONE. [Suspect]
     Active Substance: PREDNISOLONE
     Indication: GRAFT VERSUS HOST DISEASE
     Dosage: 1 MG/KG, QD
     Route: 065
  2. PREDNISOLONE. [Suspect]
     Active Substance: PREDNISOLONE
     Dosage: 2 MG/KG, QD
     Route: 065
  3. CASPOFUNGIN ACETATE [Suspect]
     Active Substance: CASPOFUNGIN ACETATE
     Indication: BRONCHOPULMONARY ASPERGILLOSIS
     Dosage: 70 MG, QD
     Route: 065
  4. AMBISOME [Suspect]
     Active Substance: AMPHOTERICIN B
     Indication: BRONCHOPULMONARY ASPERGILLOSIS
     Dosage: 3 MG/KG, QD
     Route: 065
  5. CASPOFUNGIN ACETATE [Suspect]
     Active Substance: CASPOFUNGIN ACETATE
     Dosage: 50 MG, QD
     Route: 065
  6. VANCOMYCIN [Concomitant]
     Active Substance: VANCOMYCIN
     Indication: STAPHYLOCOCCAL INFECTION
     Dosage: 1000 MG, QD
     Route: 065
  7. CEFTRIAXONE. [Concomitant]
     Active Substance: CEFTRIAXONE
     Indication: STAPHYLOCOCCAL INFECTION
     Dosage: 2 G, QD
     Route: 065
  8. TEICOPLANIN [Concomitant]
     Active Substance: TEICOPLANIN
     Indication: STAPHYLOCOCCAL INFECTION
     Dosage: 6 MG/KG, QD
     Route: 042
  9. CICLOSPORIN [Suspect]
     Active Substance: CYCLOSPORINE
     Indication: GRAFT VERSUS HOST DISEASE
     Dosage: 1.5 MG/KG, QD
     Route: 065

REACTIONS (11)
  - Skin lesion [Unknown]
  - Cytomegalovirus infection [Recovered/Resolved]
  - Cardiac murmur [Unknown]
  - Fatigue [Unknown]
  - Endocarditis [Unknown]
  - BK virus infection [Recovered/Resolved]
  - Aspergillus infection [Unknown]
  - Haemorrhagic infarction [Fatal]
  - Malaise [Unknown]
  - Septic embolus [Unknown]
  - Pyrexia [Unknown]
